FAERS Safety Report 4486203-9 (Version None)
Quarter: 2004Q4

REPORT INFORMATION
  Report Type: 
  Country: None (occurrence: None)
  Receive Date: 20041021
  Receipt Date: 20041008
  Transmission Date: 20050328
  Serious: Yes (Other)
  Sender: FDA-Public Use
  Company Number: 105242ISR

PATIENT
  Age: 55 Year
  Sex: Female

DRUGS (1)
  1. GLATIRAMER ACETATE [Suspect]
     Route: 058

REACTIONS (1)
  - IDIOPATHIC THROMBOCYTOPENIC PURPURA [None]
